FAERS Safety Report 11107734 (Version 2)
Quarter: 2016Q1

REPORT INFORMATION
  Report Type: Spontaneous
  Country: US (occurrence: US)
  Receive Date: 20150512
  Receipt Date: 20160222
  Transmission Date: 20160525
  Serious: Yes (Other)
  Sender: FDA-Public Use
  Company Number: US-PFIZER INC-2015156957

PATIENT
  Age: 49 Year
  Sex: Female
  Weight: 113 kg

DRUGS (14)
  1. MINOCYCLINE HCL [Suspect]
     Active Substance: MINOCYCLINE HYDROCHLORIDE
     Indication: DRY EYE
     Dosage: 200 MG (2 TABLETS), EVERY 12 HOURS
     Route: 048
     Dates: start: 20150130
  2. TRIAMCINOLONE ACETONIDE. [Concomitant]
     Active Substance: TRIAMCINOLONE ACETONIDE
     Dosage: 2-3 TIMES EVRY DAY A THIN FILM TO THE AFFECTED AREA
     Route: 061
     Dates: start: 20131024
  3. BETAMETHASONE DIPROPIONATE. [Concomitant]
     Active Substance: BETAMETHASONE DIPROPIONATE
     Dosage: EVERY DAY A THIN LAYER TO THE AFFECTED AREA
     Route: 061
     Dates: start: 20130724
  4. EFFEXOR XR [Concomitant]
     Active Substance: VENLAFAXINE HYDROCHLORIDE
     Dosage: 150 MG, 1X/DAY
  5. CLOBETASOL PROPIONATE. [Concomitant]
     Active Substance: CLOBETASOL PROPIONATE
     Dosage: UNK, 2X/DAY (2 TIMES EVERY DAY A THIN LAYER TO THE AFFECTED AREA)
     Route: 061
     Dates: start: 20141204
  6. HYDROCHLOROTHIAZIDE. [Suspect]
     Active Substance: HYDROCHLOROTHIAZIDE
     Indication: BLOOD PRESSURE ABNORMAL
     Dosage: 25 MG (1 TABLET), 1X/DAY
     Route: 048
  7. MOBIC [Suspect]
     Active Substance: MELOXICAM
     Indication: ARTHRALGIA
     Dosage: 15 MG (1 TABLET) EVERY DAY PM
     Route: 048
     Dates: start: 20141120
  8. METOPROLOL SUCCINATE/OLMESARTAN MEDOXOMIL [Concomitant]
     Dosage: 25 MG, EVERY BEDTIME
     Route: 048
     Dates: start: 20141204, end: 201601
  9. AMLODIPINE BESILATE [Suspect]
     Active Substance: AMLODIPINE BESYLATE
     Indication: BLOOD PRESSURE ABNORMAL
     Dosage: 5 MG, 1X/DAY
     Route: 048
     Dates: start: 20140828, end: 201511
  10. METOPROLOL SUCCINATE/OLMESARTAN MEDOXOMIL [Concomitant]
     Dosage: 25 MG, 2X/DAY
     Route: 048
     Dates: start: 201601
  11. XANAX [Suspect]
     Active Substance: ALPRAZOLAM
     Indication: ANXIETY
     Dosage: 2 MG, 3X/DAY
     Route: 048
  12. EFFEXOR XR [Concomitant]
     Active Substance: VENLAFAXINE HYDROCHLORIDE
     Dosage: 75 MG, 1X/DAY
  13. AMLODIPINE BESILATE [Suspect]
     Active Substance: AMLODIPINE BESYLATE
     Dosage: 10 MG, 1X/DAY
     Route: 048
     Dates: start: 201511
  14. METFORMIN HCL [Suspect]
     Active Substance: METFORMIN HYDROCHLORIDE
     Indication: BLOOD GLUCOSE ABNORMAL
     Dosage: 500 MG, 2X/DAY (1 TABLET WITH MEALS TWICE A DAY)
     Route: 048

REACTIONS (7)
  - Anxiety [Not Recovered/Not Resolved]
  - Essential hypertension [Not Recovered/Not Resolved]
  - Vertigo [Not Recovered/Not Resolved]
  - Depression [Not Recovered/Not Resolved]
  - Cerebrovascular disorder [Not Recovered/Not Resolved]
  - Diabetes mellitus [Not Recovered/Not Resolved]
  - Disease recurrence [Not Recovered/Not Resolved]
